FAERS Safety Report 8214878-7 (Version None)
Quarter: 2012Q1

REPORT INFORMATION
  Report Type: 
  Country: None (occurrence: None)
  Receive Date: 20120316
  Receipt Date: 20120302
  Transmission Date: 20120608
  Serious: Yes (Other)
  Sender: FDA-Public Use
  Company Number: AU-MYLANLABS-2012S1005005

PATIENT
  Age: 35 Year
  Sex: Male

DRUGS (1)
  1. PAROXETINE HCL [Suspect]
     Indication: MENTAL DISORDER
     Dosage: 20 MG/DAY
     Route: 065

REACTIONS (2)
  - HOMICIDE [None]
  - AKATHISIA [None]
